FAERS Safety Report 9323343 (Version 1)
Quarter: 2013Q2

REPORT INFORMATION
  Report Type: Spontaneous
  Country: US (occurrence: US)
  Receive Date: 20130603
  Receipt Date: 20130603
  Transmission Date: 20140414
  Serious: Yes (Other)
  Sender: FDA-Public Use
  Company Number: US-JNJFOC-20130513790

PATIENT
  Age: 28 Year
  Sex: Male
  Weight: 65.77 kg

DRUGS (3)
  1. DURAGESIC [Suspect]
     Indication: PAIN
     Route: 062
     Dates: start: 201209
  2. DURAGESIC [Suspect]
     Indication: PAIN
     Dosage: 100 UG/HR 2 PATCHES IN 48 HOURS
     Route: 062
     Dates: start: 201301
  3. MYLAN FENTANYL TRANSDERMAL SYSTEM [Suspect]
     Indication: PAIN
     Dosage: 100UG/HR 2 PATCHES
     Route: 062
     Dates: start: 201209, end: 201301

REACTIONS (5)
  - Psoriasis [Not Recovered/Not Resolved]
  - Product quality issue [Unknown]
  - Application site pruritus [Not Recovered/Not Resolved]
  - Drug administered at inappropriate site [Not Recovered/Not Resolved]
  - Wrong technique in drug usage process [Not Recovered/Not Resolved]
